FAERS Safety Report 6282183-4 (Version None)
Quarter: 2009Q3

REPORT INFORMATION
  Report Type: 
  Country: None (occurrence: None)
  Receive Date: 20090724
  Receipt Date: 20090715
  Transmission Date: 20100115
  Serious: Yes (Hospitalization)
  Sender: FDA-Public Use
  Company Number: FR-PFIZER INC-2009177538

PATIENT
  Age: 79 Year

DRUGS (5)
  1. LYRICA [Suspect]
     Indication: NEURALGIA
     Route: 048
     Dates: end: 20090108
  2. SOTALOL [Suspect]
     Indication: HYPERTENSION
     Route: 048
     Dates: end: 20090115
  3. MICARDIS HCT [Suspect]
     Indication: HYPERTENSION
     Route: 048
     Dates: end: 20090109
  4. ATORVASTATIN CALCIUM [Concomitant]
     Dosage: UNK
     Route: 048
  5. FLUINDIONE [Concomitant]
     Dosage: UNK
     Route: 048

REACTIONS (3)
  - DYSKINESIA [None]
  - FALL [None]
  - HEAD TITUBATION [None]
